FAERS Safety Report 12569498 (Version 2)
Quarter: 2016Q4

REPORT INFORMATION
  Report Type: Spontaneous
  Country: US (occurrence: US)
  Receive Date: 20160719
  Receipt Date: 20161003
  Transmission Date: 20170207
  Serious: Yes (Other)
  Sender: FDA-Public Use
  Company Number: US-PFIZER INC-2016322125

PATIENT
  Age: 59 Year
  Sex: Female

DRUGS (1)
  1. GABAPENTIN. [Suspect]
     Active Substance: GABAPENTIN
     Indication: RESTLESS LEGS SYNDROME
     Dosage: 20 MG, 2X/DAY
     Dates: start: 2005, end: 2015

REACTIONS (6)
  - Suicidal ideation [Unknown]
  - Depression [Unknown]
  - Drug ineffective for unapproved indication [Recovered/Resolved]
  - Irritability [Unknown]
  - Insomnia [Unknown]
  - Fatigue [Unknown]
